FAERS Safety Report 5145353-4 (Version None)
Quarter: 2006Q4

REPORT INFORMATION
  Report Type: 
  Country: None (occurrence: None)
  Receive Date: 20061101
  Receipt Date: 20061101
  Transmission Date: 20070319
  Serious: Yes (Hospitalization)
  Sender: FDA-Public Use
  Company Number: SOS-2006-033

PATIENT
  Sex: Male

DRUGS (2)
  1. DISULFIRAM [Suspect]
     Indication: ALCOHOL USE
     Dosage: 1000MG/D
  2. PHENYTOIN SODIUM CAP [Concomitant]

REACTIONS (3)
  - HEPATIC FIBROSIS [None]
  - HEPATITIS CHRONIC ACTIVE [None]
  - HEPATOCELLULAR DAMAGE [None]
